FAERS Safety Report 7000470-9 (Version None)
Quarter: 2010Q3

REPORT INFORMATION
  Report Type: 
  Country: None (occurrence: None)
  Receive Date: 20100920
  Receipt Date: 20100910
  Transmission Date: 20110219
  Serious: Yes (Hospitalization)
  Sender: FDA-Public Use
  Company Number: JP-JNJFOC-20100905430

PATIENT
  Sex: Female

DRUGS (7)
  1. CRAVIT [Suspect]
     Indication: CYSTITIS
     Route: 048
  2. RYTHMODAN [Suspect]
     Indication: ARRHYTHMIA
     Route: 048
  3. KLARICID [Suspect]
     Indication: SINUSITIS
     Route: 048
  4. NATRIX [Concomitant]
     Indication: HYPERTENSION
     Route: 048
  5. AMLODIPINE BESYLATE [Concomitant]
     Indication: HYPERTENSION
     Route: 048
  6. DOXAZOSIN MESYLATE [Concomitant]
     Indication: HYPERTENSION
     Route: 048
  7. SHAKUYAKUKANZOUTOU [Concomitant]
     Indication: SCIATICA
     Route: 048

REACTIONS (8)
  - ARRHYTHMIA [None]
  - CHEST DISCOMFORT [None]
  - DIZZINESS [None]
  - FALL [None]
  - FEELING ABNORMAL [None]
  - HYPOKINESIA [None]
  - LOSS OF CONSCIOUSNESS [None]
  - TORSADE DE POINTES [None]
